FAERS Safety Report 26109035 (Version 1)
Quarter: 2025Q4

REPORT INFORMATION
  Report Type: Spontaneous
  Country: EU (occurrence: EU)
  Receive Date: 20251201
  Receipt Date: 20251201
  Transmission Date: 20260118
  Serious: Yes (Other)
  Sender: AVEO PHARMACEUTICALS
  Company Number: EU-AVEO PHARMACEUTICALS, INC.-2025-AVEO-DE000984

PATIENT
  Sex: Male

DRUGS (1)
  1. FOTIVDA [Suspect]
     Active Substance: TIVOZANIB HYDROCHLORIDE
     Indication: Metastatic renal cell carcinoma
     Dosage: 1340 NG

REACTIONS (2)
  - Arterial occlusive disease [Unknown]
  - Off label use [Unknown]
